FAERS Safety Report 6265043-4 (Version None)
Quarter: 2009Q3

REPORT INFORMATION
  Report Type: 
  Country: None (occurrence: None)
  Receive Date: 20090713
  Receipt Date: 20090629
  Transmission Date: 20100115
  Serious: Yes (Hospitalization, Other)
  Sender: FDA-Public Use
  Company Number: US-PFIZER INC-2008096273

PATIENT
  Sex: Female
  Weight: 72.574 kg

DRUGS (10)
  1. CHANTIX [Suspect]
     Indication: SMOKING CESSATION THERAPY
     Dosage: 0.5 MG, 1X/DAY
     Dates: start: 20081001, end: 20081117
  2. ACETYLSALICYLIC ACID [Concomitant]
     Dosage: UNK
  3. SYNTHROID [Concomitant]
     Dosage: UNK
  4. CLONIDINE [Concomitant]
     Dosage: UNK
  5. ZYRTEC [Concomitant]
     Dosage: UNK
  6. SPIRIVA [Concomitant]
     Dosage: UNK
  7. ADVAIR HFA [Concomitant]
     Dosage: UNK
  8. NEXIUM [Concomitant]
     Dosage: UNK
  9. FELDENE [Concomitant]
     Dosage: UNK
  10. HYDROCHLOROTHIAZIDE [Concomitant]
     Dosage: UNK

REACTIONS (14)
  - ABDOMINAL PAIN UPPER [None]
  - APHASIA [None]
  - ASTHMA [None]
  - BLOOD PRESSURE DECREASED [None]
  - CEREBROVASCULAR ACCIDENT [None]
  - CHEST PAIN [None]
  - HEADACHE [None]
  - HOT FLUSH [None]
  - HYPERTENSION [None]
  - MEMORY IMPAIRMENT [None]
  - NAUSEA [None]
  - PAIN IN EXTREMITY [None]
  - PELVIC PAIN [None]
  - VAGINAL HAEMORRHAGE [None]
